FAERS Safety Report 19003944 (Version 1)
Quarter: 2021Q1

REPORT INFORMATION
  Report Type: Spontaneous
  Country: US (occurrence: US)
  Receive Date: 20210312
  Receipt Date: 20210312
  Transmission Date: 20210420
  Serious: No
  Sender: FDA-Public Use
  Company Number: US-SMITH AND NEPHEW, INC-2020SMT00026

PATIENT
  Age: 86 Year
  Sex: Female
  Weight: 58.05 kg

DRUGS (1)
  1. COLLAGENASE SANTYL [Suspect]
     Active Substance: COLLAGENASE CLOSTRIDIUM HISTOLYTICUM
     Indication: WOUND
     Dosage: PEA SIZE, 2X/DAY BETWEEN TOES
     Route: 061
     Dates: start: 20200226, end: 20200307

REACTIONS (3)
  - Impaired healing [Recovered/Resolved]
  - Application site pain [Recovered/Resolved]
  - Drug ineffective [Recovered/Resolved]

NARRATIVE: CASE EVENT DATE: 2020
